FAERS Safety Report 22029913 (Version 1)
Quarter: 2023Q1

REPORT INFORMATION
  Report Type: Spontaneous
  Country: SI (occurrence: SI)
  Receive Date: 20230223
  Receipt Date: 20230223
  Transmission Date: 20230418
  Serious: Yes (Hospitalization)
  Sender: FDA-Public Use
  Company Number: SI-AstraZeneca-2023A028057

PATIENT
  Age: 1 Year
  Sex: Female

DRUGS (1)
  1. QUETIAPINE [Suspect]
     Active Substance: QUETIAPINE
     Indication: Product used for unknown indication
     Dosage: UNK,FILM-COATED TABLET
     Route: 048

REACTIONS (2)
  - Somnolence [Unknown]
  - Accidental exposure to product by child [Unknown]
